FAERS Safety Report 4636204-2 (Version None)
Quarter: 2005Q2

REPORT INFORMATION
  Report Type: 
  Country: None (occurrence: None)
  Receive Date: 20050325
  Receipt Date: 20050127
  Transmission Date: 20051028
  Serious: No
  Sender: FDA-Public Use
  Company Number: USA040567309

PATIENT
  Age: 82 Year
  Sex: Female
  Weight: 46 kg

DRUGS (1)
  1. FORTEO [Suspect]
     Dosage: 20 UG  DAY
     Dates: start: 20040510

REACTIONS (5)
  - COUGH [None]
  - INJECTION SITE PAIN [None]
  - NASOPHARYNGITIS [None]
  - RESPIRATORY TRACT CONGESTION [None]
  - RHINORRHOEA [None]
